FAERS Safety Report 24745753 (Version 5)
Quarter: 2025Q2

REPORT INFORMATION
  Report Type: Spontaneous
  Country: US (occurrence: US)
  Receive Date: 20241218
  Receipt Date: 20250505
  Transmission Date: 20250717
  Serious: Yes (Hospitalization, Other)
  Sender: SANOFI AVENTIS
  Company Number: US-SA-2024SA370697

PATIENT
  Age: 64 Year
  Sex: Male

DRUGS (21)
  1. DUPIXENT [Suspect]
     Active Substance: DUPILUMAB
     Indication: Hypersensitivity
     Dosage: 300 MG, EVERY 10-12 DAYS
     Route: 058
     Dates: start: 2023, end: 202412
  2. DUPIXENT [Suspect]
     Active Substance: DUPILUMAB
     Dosage: 300 MG, QOW
     Route: 058
  3. PROSCAR [Concomitant]
     Active Substance: FINASTERIDE
  4. OMEPRAZOLE [Concomitant]
     Active Substance: OMEPRAZOLE
  5. GABAPENTIN [Concomitant]
     Active Substance: GABAPENTIN
  6. FLONASE ALLERGY RELIEF [Concomitant]
     Active Substance: FLUTICASONE PROPIONATE
     Dosage: 2 DF QD
  7. MUPIROCIN [Concomitant]
     Active Substance: MUPIROCIN
  8. LOSARTAN [Concomitant]
     Active Substance: LOSARTAN
  9. AZELASTINE [Concomitant]
     Active Substance: AZELASTINE
     Dosage: 1 DF; BID AS NEEDED
  10. ALBUTEROL SULFATE [Concomitant]
     Active Substance: ALBUTEROL SULFATE
     Dosage: 2 DF; QID AS NEEDED
  11. PEPCID [Concomitant]
     Active Substance: FAMOTIDINE
  12. NEILMED SINUS RINSE [Concomitant]
     Active Substance: SODIUM BICARBONATE\SODIUM CHLORIDE
     Dosage: I SIG; INFUSE I BOTTLE AS DIRECTED TWICE A DAY 30 DISPENSE: 60 REFILLS: 12 NOTE: STERILE WATER WITH
  13. METHYLPREDNISOLONE [Concomitant]
     Active Substance: METHYLPREDNISOLONE
  14. PENTOXIFYLLINE [Concomitant]
     Active Substance: PENTOXIFYLLINE
  15. TRAMADOL [Concomitant]
     Active Substance: TRAMADOL
  16. FLUTICASONE PROPIONATE\SALMETEROL XINAFOATE [Concomitant]
     Active Substance: FLUTICASONE PROPIONATE\SALMETEROL XINAFOATE
  17. ONDANSETRON [Concomitant]
     Active Substance: ONDANSETRON
  18. FAMOTIDINE [Concomitant]
     Active Substance: FAMOTIDINE
  19. TAMSULOSIN [Concomitant]
     Active Substance: TAMSULOSIN
  20. SUCRALFATE [Concomitant]
     Active Substance: SUCRALFATE
  21. FINASTERIDE [Concomitant]
     Active Substance: FINASTERIDE

REACTIONS (25)
  - Sepsis [Unknown]
  - Cataract [Unknown]
  - Visual impairment [Unknown]
  - Hospitalisation [Unknown]
  - Stomatitis [Unknown]
  - Balance disorder [Unknown]
  - Epistaxis [Unknown]
  - Nasal obstruction [Unknown]
  - Dysphagia [Recovered/Resolved]
  - Sleep apnoea syndrome [Unknown]
  - Facial pain [Unknown]
  - Dysphonia [Unknown]
  - Sinus congestion [Unknown]
  - Ear discomfort [Unknown]
  - Dyspepsia [Unknown]
  - Wheezing [Unknown]
  - Snoring [Unknown]
  - Headache [Unknown]
  - Dizziness [Unknown]
  - Gastrointestinal disorder [Unknown]
  - Fall [Unknown]
  - Limb discomfort [Unknown]
  - Arthralgia [Unknown]
  - Intentional product misuse [Unknown]
  - Product use in unapproved indication [Unknown]

NARRATIVE: CASE EVENT DATE: 20230101
